FAERS Safety Report 5391105-X (Version None)
Quarter: 2007Q3

REPORT INFORMATION
  Report Type: 
  Country: None (occurrence: None)
  Receive Date: 20070719
  Receipt Date: 20070710
  Transmission Date: 20080115
  Serious: Yes (Other)
  Sender: FDA-Public Use
  Company Number: PHRM2007FR01452

PATIENT
  Sex: Female

DRUGS (2)
  1. METOPIRONE [Suspect]
     Indication: CUSHING'S SYNDROME
     Route: 048
     Dates: start: 20070511
  2. ANTICOAGULANTS [Suspect]

REACTIONS (4)
  - COAGULOPATHY [None]
  - INTERNATIONAL NORMALISED RATIO INCREASED [None]
  - LIVER DISORDER [None]
  - THROMBOCYTOPENIA [None]
